FAERS Safety Report 6806538-1 (Version None)
Quarter: 2010Q2

REPORT INFORMATION
  Report Type: 
  Country: None (occurrence: None)
  Receive Date: 20100629
  Receipt Date: 20080306
  Transmission Date: 20101027
  Serious: Yes (Other)
  Sender: FDA-Public Use
  Company Number: US-PFIZER INC-2008021478

PATIENT
  Sex: Female
  Weight: 61.7 kg

DRUGS (4)
  1. XANAX [Suspect]
     Indication: NERVOUSNESS
     Route: 048
  2. LORCET-HD [Concomitant]
  3. ANTIHYPERTENSIVES [Concomitant]
  4. ALL OTHER THERAPEUTIC PRODUCTS [Concomitant]

REACTIONS (4)
  - ADVERSE DRUG REACTION [None]
  - DRUG ABUSE [None]
  - HEARING IMPAIRED [None]
  - WITHDRAWAL SYNDROME [None]
